FAERS Safety Report 6820784-2 (Version None)
Quarter: 2010Q3

REPORT INFORMATION
  Report Type: 
  Country: None (occurrence: None)
  Receive Date: 20100707
  Receipt Date: 20070510
  Transmission Date: 20110219
  Serious: No
  Sender: FDA-Public Use
  Company Number: US-PFIZER INC-2007038155

PATIENT
  Sex: Male
  Weight: 71 kg

DRUGS (3)
  1. ZOLOFT [Suspect]
     Indication: DEPRESSION
     Dates: start: 20070301
  2. ZYRTEC [Concomitant]
  3. MONTELUKAST SODIUM [Concomitant]

REACTIONS (1)
  - DRUG SCREEN POSITIVE [None]
